FAERS Safety Report 8906497 (Version 1)
Quarter: 2012Q4

REPORT INFORMATION
  Report Type: Spontaneous
  Country: US (occurrence: None)
  Receive Date: 20121113
  Receipt Date: 20121113
  Transmission Date: 20130627
  Serious: Yes (Life-Threatening)
  Sender: FDA-Public Use
  Company Number: None

PATIENT
  Age: 78 Year
  Sex: Female
  Weight: 73.94 kg

DRUGS (1)
  1. HEPARIN SODIUM [Suspect]
     Indication: CARDIAC CATHETERISATION
     Dosage: 2000 Units  start of case   Intracoronary
     Dates: start: 20121108, end: 20121109

REACTIONS (3)
  - Drug effect decreased [None]
  - Product quality issue [None]
  - Thrombosis in device [None]
